FAERS Safety Report 5841081-8 (Version None)
Quarter: 2008Q3

REPORT INFORMATION
  Report Type: 
  Country: None (occurrence: None)
  Receive Date: 20080812
  Receipt Date: 20080801
  Transmission Date: 20090109
  Serious: Yes (Hospitalization)
  Sender: FDA-Public Use
  Company Number: IT-RANBAXY-2008RR-16929

PATIENT

DRUGS (2)
  1. CLARITHROMICINA RANBAXY ITALIA 250MG COMPRESSE RIVESTITE CON FILM [Suspect]
  2. PARACETAMOLO RANBAXY 120MG/5ML SOLUZIONE ORALE [Suspect]

REACTIONS (1)
  - HAEMATEMESIS [None]
